FAERS Safety Report 17802014 (Version 1)
Quarter: 2020Q2

REPORT INFORMATION
  Report Type: Spontaneous
  Country: US (occurrence: US)
  Receive Date: 20200518
  Receipt Date: 20200518
  Transmission Date: 20200714
  Serious: No
  Sender: FDA-Public Use
  Company Number: None

PATIENT
  Age: 12 Year
  Sex: Female
  Weight: 56.66 kg

DRUGS (1)
  1. GUANFACINE EXTENDED-RELEASE [Suspect]
     Active Substance: GUANFACINE
     Indication: ATTENTION DEFICIT HYPERACTIVITY DISORDER
     Dosage: ?          QUANTITY:1 TABLET(S);?
     Route: 048
     Dates: start: 20200507, end: 20200517

REACTIONS (5)
  - Hallucination [None]
  - Hyperhidrosis [None]
  - Nightmare [None]
  - Urinary incontinence [None]
  - Screaming [None]

NARRATIVE: CASE EVENT DATE: 20200518
